FAERS Safety Report 6237165-5 (Version None)
Quarter: 2009Q2

REPORT INFORMATION
  Report Type: 
  Country: None (occurrence: None)
  Receive Date: 20090619
  Receipt Date: 20090508
  Transmission Date: 20091009
  Serious: No
  Sender: FDA-Public Use
  Company Number: US-ASTRAZENECA-2009UW11752

PATIENT
  Sex: Female

DRUGS (2)
  1. SYMBICORT [Suspect]
     Indication: CHEST DISCOMFORT
     Dosage: 80/4.5 MCG
     Route: 055
  2. SYMBICORT [Suspect]
     Dosage: 80/4.5 MCG 2 PUFFS
     Route: 055
     Dates: start: 20090506

REACTIONS (1)
  - CHEST DISCOMFORT [None]
